FAERS Safety Report 16262886 (Version 2)
Quarter: 2019Q2

REPORT INFORMATION
  Report Type: Spontaneous
  Country: US (occurrence: US)
  Receive Date: 20190502
  Receipt Date: 20190506
  Transmission Date: 20190711
  Serious: No
  Sender: FDA-Public Use
  Company Number: US-JNJFOC-20190427159

PATIENT

DRUGS (3)
  1. APRISO [Concomitant]
     Active Substance: MESALAMINE
     Route: 065
  2. AZATHIOPRINE. [Concomitant]
     Active Substance: AZATHIOPRINE
     Route: 065
  3. REMICADE [Suspect]
     Active Substance: INFLIXIMAB
     Indication: INFLAMMATORY BOWEL DISEASE
     Route: 042

REACTIONS (7)
  - Diarrhoea [Unknown]
  - Feeling abnormal [Unknown]
  - Contusion [Unknown]
  - Drug specific antibody [Unknown]
  - Drug ineffective [Unknown]
  - Miliaria [Unknown]
  - Alopecia [Unknown]
